FAERS Safety Report 12681315 (Version 3)
Quarter: 2016Q3

REPORT INFORMATION
  Report Type: Spontaneous
  Country: FR (occurrence: FR)
  Receive Date: 20160824
  Receipt Date: 20160916
  Transmission Date: 20161109
  Serious: Yes (Hospitalization)
  Sender: FDA-Public Use
  Company Number: FR-PFIZER INC-2016389792

PATIENT
  Age: 70 Year
  Sex: Male

DRUGS (4)
  1. FUCIDINE [Interacting]
     Active Substance: FUSIDIC ACID
     Dosage: 750 MG, UNK
     Route: 048
     Dates: start: 20160720, end: 20160802
  2. DALACINE - PER [Concomitant]
     Dosage: UNK
     Dates: start: 20160720
  3. TAHOR [Suspect]
     Active Substance: ATORVASTATIN CALCIUM
     Indication: DYSLIPIDAEMIA
     Dosage: 40 MG, DAILY
     Route: 048
     Dates: end: 20160802
  4. COLCHICINE OPOCALCIUM [Interacting]
     Active Substance: COLCHICINE
     Indication: BEHCET^S SYNDROME
     Dosage: 1 MG, UNK
     Dates: end: 20160805

REACTIONS (9)
  - Glomerular filtration rate decreased [Recovered/Resolved]
  - Amyotrophy [Recovered/Resolved]
  - Toxicity to various agents [Recovered/Resolved]
  - Myalgia [Recovered/Resolved]
  - Drug interaction [Recovered/Resolved]
  - Transaminases increased [Recovered/Resolved]
  - Contraindicated product administered [Recovered/Resolved]
  - Diarrhoea [Recovered/Resolved]
  - Rhabdomyolysis [Recovered/Resolved]

NARRATIVE: CASE EVENT DATE: 201608
